FAERS Safety Report 23093815 (Version 4)
Quarter: 2023Q4

REPORT INFORMATION
  Report Type: Report from Study
  Country: US (occurrence: US)
  Receive Date: 20231023
  Receipt Date: 20231226
  Transmission Date: 20240110
  Serious: Yes (Hospitalization, Disabling)
  Sender: FDA-Public Use
  Company Number: US-ABBVIE-5458392

PATIENT
  Sex: Female

DRUGS (3)
  1. DUOPA [Suspect]
     Active Substance: CARBIDOPA\LEVODOPA
     Indication: Parkinson^s disease
     Dosage: LAST ADMIN -  2022
     Route: 050
     Dates: start: 20220801
  2. DUOPA [Suspect]
     Active Substance: CARBIDOPA\LEVODOPA
     Dosage: 1 CASSETTE VIA PEG -J EVERY 12 HOURS . CONTINUOUS DOSE 3.9 ML/HOUR (3.5 -4.5 ML/HOUR), EXTRA DOSE...
     Route: 050
     Dates: start: 20220926, end: 2023
  3. DUOPA [Suspect]
     Active Substance: CARBIDOPA\LEVODOPA
     Route: 050
     Dates: start: 2023, end: 20231108

REACTIONS (9)
  - Diverticulitis [Not Recovered/Not Resolved]
  - Tremor [Unknown]
  - Immobile [Not Recovered/Not Resolved]
  - Furuncle [Unknown]
  - Freezing phenomenon [Unknown]
  - Loss of personal independence in daily activities [Unknown]
  - Dyskinesia [Unknown]
  - Gait inability [Unknown]
  - Dysstasia [Unknown]
